FAERS Safety Report 9628166 (Version 2)
Quarter: 2013Q4

REPORT INFORMATION
  Report Type: Spontaneous
  Country: US (occurrence: US)
  Receive Date: 20131017
  Receipt Date: 20131223
  Transmission Date: 20140711
  Serious: No
  Sender: FDA-Public Use
  Company Number: US-BIOGENIDEC-2013BI000242

PATIENT
  Sex: Female

DRUGS (2)
  1. AVONEX [Suspect]
     Indication: RELAPSING-REMITTING MULTIPLE SCLEROSIS
     Route: 030
     Dates: start: 19990915
  2. AVONEX [Suspect]
     Indication: RELAPSING-REMITTING MULTIPLE SCLEROSIS
     Route: 030

REACTIONS (7)
  - General symptom [Recovered/Resolved with Sequelae]
  - Mobility decreased [Unknown]
  - Influenza like illness [Not Recovered/Not Resolved]
  - Fatigue [Recovered/Resolved with Sequelae]
  - Depression [Not Recovered/Not Resolved]
  - Headache [Recovered/Resolved]
  - Paraesthesia [Unknown]
